FAERS Safety Report 9278386 (Version 1)
Quarter: 2013Q2

REPORT INFORMATION
  Report Type: Report from Study
  Country: US (occurrence: US)
  Receive Date: 20130508
  Receipt Date: 20130508
  Transmission Date: 20140414
  Serious: Yes (Other)
  Sender: FDA-Public Use
  Company Number: US-ROCHE-1220854

PATIENT
  Age: 65 Year
  Sex: Female
  Weight: 60.7 kg

DRUGS (4)
  1. BEVACIZUMAB [Suspect]
     Indication: OVARIAN CANCER
     Dosage: FOR CYCLES 2- 6 AND CYCLES 7-22; DATE OF LAST DOSE PRIOR TO SAE: 08/FEB/2013
     Route: 042
     Dates: start: 20121113
  2. VELIPARIB [Suspect]
     Indication: OVARIAN CANCER
     Dosage: DATE OF LAST DOSE PRIOR TO SAE: 12/FEB/2013
     Route: 048
     Dates: start: 20121113
  3. PACLITAXEL [Suspect]
     Indication: OVARIAN CANCER
     Dosage: FOR CYCLES 1 AND 2 TO 6; DATE OF LAST DOSE PRIOR TO SAE: 21/FEB/2013
     Route: 042
     Dates: start: 20121113
  4. CARBOPLATIN [Suspect]
     Indication: OVARIAN CANCER
     Dosage: AUC = 6; FOR CYCLES 1 AND 2 TO 6; DATE OF LAST DOSE PRIOR TO SAE: 08/FEB/2013
     Route: 042
     Dates: start: 20121113

REACTIONS (1)
  - Tremor [Recovered/Resolved]
